FAERS Safety Report 15530163 (Version 2)
Quarter: 2018Q4

REPORT INFORMATION
  Report Type: Report from Study
  Country: AU (occurrence: AU)
  Receive Date: 20181018
  Receipt Date: 20181022
  Transmission Date: 20190205
  Serious: Yes (Hospitalization, Other)
  Sender: FDA-Public Use
  Company Number: AU-MYLANLABS-2018M1077500

PATIENT
  Sex: Male

DRUGS (1)
  1. CLOZARIL [Suspect]
     Active Substance: CLOZAPINE
     Indication: SCHIZOPHRENIA
     Dosage: 250 MG, UNK
     Route: 048
     Dates: start: 20180907

REACTIONS (6)
  - White blood cell count increased [Unknown]
  - Oedema [Unknown]
  - Pneumonia [Unknown]
  - Eosinophil count increased [Unknown]
  - Fibrosis [Unknown]
  - Myocarditis [Unknown]

NARRATIVE: CASE EVENT DATE: 2018
